FAERS Safety Report 6176950-5 (Version None)
Quarter: 2009Q2

REPORT INFORMATION
  Report Type: 
  Country: None (occurrence: None)
  Receive Date: 20090501
  Receipt Date: 20090123
  Transmission Date: 20091009
  Serious: Yes (Hospitalization, Other)
  Sender: FDA-Public Use
  Company Number: US-ALEXION-A200900016

PATIENT
  Sex: Male

DRUGS (5)
  1. SOLIRIS [Suspect]
     Indication: PAROXYSMAL NOCTURNAL HAEMOGLOBINURIA
     Dosage: UNK
     Route: 042
  2. SOLIRIS [Suspect]
     Dosage: 900 MG, QW
     Route: 042
  3. SOLIRIS [Suspect]
     Dosage: UNK
     Route: 042
  4. NIFEDIPINE [Concomitant]
  5. INSULIN [Concomitant]

REACTIONS (3)
  - ANGINA PECTORIS [None]
  - BLOOD CREATININE INCREASED [None]
  - HAEMOLYSIS [None]
